FAERS Safety Report 17493461 (Version 1)
Quarter: 2020Q1

REPORT INFORMATION
  Report Type: Spontaneous
  Country: US (occurrence: US)
  Receive Date: 20200303
  Receipt Date: 20200303
  Transmission Date: 20200409
  Serious: No
  Sender: FDA-Public Use
  Company Number: US-AMNEAL PHARMACEUTICALS-2019-IPXL-00934

PATIENT
  Age: 78 Year
  Sex: Male
  Weight: 61 kg

DRUGS (8)
  1. SIMVASTATIN. [Concomitant]
     Active Substance: SIMVASTATIN
     Indication: BLOOD CHOLESTEROL INCREASED
     Dosage: 20 MILLIGRAM, DAILY
     Route: 065
  2. RYTARY [Suspect]
     Active Substance: CARBIDOPA\LEVODOPA
     Indication: PARKINSON^S DISEASE
     Dosage: 36.25/145MG, 3 /DAY
     Route: 048
  3. BUPRANOLOL [Concomitant]
     Active Substance: BUPRANOLOL
     Indication: RESTLESS LEGS SYNDROME
     Dosage: 2 MILLIGRAM, DAILY
     Route: 065
  4. RYTARY [Suspect]
     Active Substance: CARBIDOPA\LEVODOPA
     Dosage: 3 DOSAGE FORM, 3 /DAY, 23.75-95MG
     Route: 048
  5. MIRTAZAPINE. [Concomitant]
     Active Substance: MIRTAZAPINE
     Indication: PRODUCT USED FOR UNKNOWN INDICATION
     Dosage: 30 MILLIGRAM, DAILY
     Route: 065
  6. RYTARY [Suspect]
     Active Substance: CARBIDOPA\LEVODOPA
     Dosage: 36.25MG/145MG, 3 /DAY
     Route: 048
  7. RYTARY [Suspect]
     Active Substance: CARBIDOPA\LEVODOPA
     Dosage: 36.25MG/145MG, 3 /DAY
     Route: 048
     Dates: start: 20190423
  8. RYTARY [Suspect]
     Active Substance: CARBIDOPA\LEVODOPA
     Dosage: UNK, 23.75MG/95MG
     Route: 048
     Dates: start: 2018

REACTIONS (7)
  - Intentional product use issue [Unknown]
  - Hallucination [Unknown]
  - Dry mouth [Recovered/Resolved]
  - Aggression [Unknown]
  - Cognitive disorder [Recovered/Resolved]
  - Lethargy [Unknown]
  - Insomnia [Unknown]

NARRATIVE: CASE EVENT DATE: 20190506
